FAERS Safety Report 7465654-4 (Version None)
Quarter: 2011Q2

REPORT INFORMATION
  Report Type: 
  Country: None (occurrence: None)
  Receive Date: 20110509
  Receipt Date: 20110503
  Transmission Date: 20111010
  Serious: Yes (Other)
  Sender: FDA-Public Use
  Company Number: A0918297A

PATIENT
  Age: 75 Year
  Sex: Female
  Weight: 70 kg

DRUGS (5)
  1. METHOTREXATE [Concomitant]
  2. DILTIAZEM [Concomitant]
  3. OXYGEN [Concomitant]
  4. PLAQUENIL [Concomitant]
  5. ADVAIR DISKUS 100/50 [Suspect]
     Indication: ASTHMA
     Dosage: 1PUFF TWICE PER DAY
     Route: 055
     Dates: start: 20110225, end: 20110227

REACTIONS (5)
  - ASTHMA [None]
  - ADVERSE REACTION [None]
  - PALPITATIONS [None]
  - DYSPNOEA [None]
  - DRUG INEFFECTIVE [None]
